FAERS Safety Report 8393506-4 (Version None)
Quarter: 2012Q2

REPORT INFORMATION
  Report Type: 
  Country: None (occurrence: None)
  Receive Date: 20120529
  Receipt Date: 20120522
  Transmission Date: 20120825
  Serious: Yes (Hospitalization)
  Sender: FDA-Public Use
  Company Number: US-FRI-1000029900

PATIENT
  Age: 83 Year
  Sex: Female
  Weight: 45.3 kg

DRUGS (1)
  1. TEFLARO [Suspect]
     Indication: PNEUMONIA
     Dosage: 600 MG
     Route: 042

REACTIONS (1)
  - HAEMOLYTIC ANAEMIA [None]
